FAERS Safety Report 10224693 (Version 2)
Quarter: 2014Q2

REPORT INFORMATION
  Report Type: Spontaneous
  Country: JP (occurrence: JP)
  Receive Date: 20140609
  Receipt Date: 20140623
  Transmission Date: 20141212
  Serious: Yes (Other)
  Sender: FDA-Public Use
  Company Number: JP-NAPPMUNDI-GBR-2014-0018600

PATIENT
  Sex: Female

DRUGS (1)
  1. NORSPAN 5MG [Suspect]
     Indication: OFF LABEL USE
     Dosage: 5 MCG, Q1H
     Route: 062
     Dates: start: 20140128, end: 20140129

REACTIONS (3)
  - Intentional product misuse [Unknown]
  - Application site discolouration [Not Recovered/Not Resolved]
  - Application site dermatitis [Recovering/Resolving]
